FAERS Safety Report 22616627 (Version 1)
Quarter: 2023Q2

REPORT INFORMATION
  Report Type: Spontaneous
  Country: JP (occurrence: JP)
  Receive Date: 20230619
  Receipt Date: 20230619
  Transmission Date: 20230721
  Serious: Yes (Other)
  Sender: FDA-Public Use
  Company Number: JP-TEVA-2023-JP-2898530

PATIENT
  Age: 8 Decade
  Sex: Female

DRUGS (2)
  1. PREDNISOLONE [Suspect]
     Active Substance: PREDNISOLONE
     Indication: Hypersensitivity pneumonitis
     Dosage: 25 MILLIGRAM DAILY;
     Route: 048
  2. CYCLOSPORINE [Suspect]
     Active Substance: CYCLOSPORINE
     Indication: Hypersensitivity pneumonitis
     Route: 065

REACTIONS (1)
  - Alveolar proteinosis [Recovering/Resolving]
